FAERS Safety Report 23269073 (Version 1)
Quarter: 2023Q4

REPORT INFORMATION
  Report Type: Spontaneous
  Country: CN (occurrence: CN)
  Receive Date: 20231206
  Receipt Date: 20231206
  Transmission Date: 20240109
  Serious: Yes (Hospitalization, Other)
  Sender: FDA-Public Use
  Company Number: None

PATIENT
  Age: 69 Year
  Sex: Female
  Weight: 52 kg

DRUGS (6)
  1. CYCLOPHOSPHAMIDE [Suspect]
     Active Substance: CYCLOPHOSPHAMIDE
     Indication: Non-Hodgkin^s lymphoma
     Dosage: 1 G, ONE TIME IN ONE DAY, DILUTED WITH 100 ML OF SODIUM CHLORIDE (1/DAY)
     Route: 041
     Dates: start: 20231117, end: 20231117
  2. CYCLOPHOSPHAMIDE [Suspect]
     Active Substance: CYCLOPHOSPHAMIDE
     Indication: Neoplasm
  3. SODIUM CHLORIDE [Suspect]
     Active Substance: SODIUM CHLORIDE
     Indication: Medication dilution
     Dosage: 100 ML, ONE TIME IN ONE DAY (1/DAY), USED TO DILUTE 1 G OF CYCLOPHOSPHAMIDE
     Route: 041
     Dates: start: 20231117, end: 20231117
  4. SODIUM CHLORIDE [Suspect]
     Active Substance: SODIUM CHLORIDE
     Dosage: 250 ML, ONE TIME IN ONE DAY (1/DAY), USED TO DILUTE 80 MG OF EPIRUBICIN HYDROCHLORIDE
     Route: 041
     Dates: start: 20231117, end: 20231117
  5. EPIRUBICIN HYDROCHLORIDE [Suspect]
     Active Substance: EPIRUBICIN HYDROCHLORIDE
     Indication: Non-Hodgkin^s lymphoma
     Dosage: 80 MG, ONE TIME IN ONE DAY, DILUTED WITH 250 ML OF SODIUM CHLORIDE (1/DAY)
     Route: 041
     Dates: start: 20231117, end: 20231117
  6. EPIRUBICIN HYDROCHLORIDE [Suspect]
     Active Substance: EPIRUBICIN HYDROCHLORIDE
     Indication: Neoplasm

REACTIONS (1)
  - Myelosuppression [Recovering/Resolving]

NARRATIVE: CASE EVENT DATE: 20231118
